FAERS Safety Report 8319263-5 (Version None)
Quarter: 2012Q2

REPORT INFORMATION
  Report Type: 
  Country: None (occurrence: None)
  Receive Date: 20120427
  Receipt Date: 20090831
  Transmission Date: 20120825
  Serious: No
  Sender: FDA-Public Use
  Company Number: US-TEVA-2009010069

PATIENT
  Sex: Female
  Weight: 42.676 kg

DRUGS (25)
  1. TORADOL [Concomitant]
     Dates: start: 20060301
  2. MIRALAX [Concomitant]
     Dates: start: 20050101
  3. UREA CREAM [Concomitant]
     Dates: start: 20060101
  4. APRISO [Concomitant]
     Dates: start: 20090101
  5. CLONAZEPAM [Concomitant]
     Dates: start: 20050101
  6. LIDODERM [Concomitant]
     Dates: start: 20060601
  7. HYCOSAMINE [Concomitant]
     Dates: start: 20060101
  8. MAXALT [Concomitant]
     Dates: start: 20060101
  9. FENTANYL CITRATE [Concomitant]
     Dates: start: 20090101
  10. CULTURELLE [Concomitant]
     Dates: start: 19980101
  11. TRANSDERM SCOP [Concomitant]
  12. IMITREX [Concomitant]
     Dates: start: 20060101
  13. KONSYL [Concomitant]
     Dates: start: 20040101
  14. LOMOTIL [Concomitant]
     Dates: start: 19980101
  15. NUVIGIL [Suspect]
     Indication: SOMNOLENCE
     Dosage: 250 MILLIGRAM;
     Route: 048
     Dates: start: 20090601
  16. COMPAZINE [Concomitant]
     Dates: start: 19990101
  17. DARVON [Concomitant]
     Dates: start: 19900101
  18. PROTONIX [Concomitant]
     Dates: start: 20080101
  19. TESTOSTERONE [Concomitant]
     Dates: start: 19990101
  20. DOXAZOSIN MESYLATE [Concomitant]
     Dates: start: 20060601
  21. MOTRIN [Concomitant]
     Dates: start: 19900101
  22. MERCAPTOPURINE 6-MP [Concomitant]
     Dates: start: 19980101
  23. FENTANYL-100 [Concomitant]
  24. FLURAZEPAM [Concomitant]
  25. COMBIPATCH [Concomitant]
     Dates: start: 19970101

REACTIONS (2)
  - DRUG TOLERANCE [None]
  - DRUG PRESCRIBING ERROR [None]
